FAERS Safety Report 6432304-5 (Version None)
Quarter: 2009Q4

REPORT INFORMATION
  Report Type: 
  Country: None (occurrence: None)
  Receive Date: 20091109
  Receipt Date: 20091028
  Transmission Date: 20100525
  Serious: Yes (Death, Life-Threatening, Hospitalization)
  Sender: FDA-Public Use
  Company Number: KR-PFIZER INC-2009284061

PATIENT
  Age: 24 Year
  Sex: Male
  Weight: 67 kg

DRUGS (25)
  1. VORICONAZOLE [Suspect]
     Indication: ASPERGILLOSIS
     Dosage: 195 MG, 2X/DAY
     Route: 042
     Dates: start: 20080822, end: 20080822
  2. VORICONAZOLE [Suspect]
     Dosage: 130 MG, 2X/DAY
     Route: 042
     Dates: start: 20080823, end: 20080825
  3. DIHYDROCODEINE [Concomitant]
     Indication: COUGH
     Dosage: 60 MG, 2X/DAY OR 3X/DAY
     Route: 048
     Dates: start: 20080820, end: 20080906
  4. IVY EXTRACT [Concomitant]
     Indication: ANTITUSSIVE THERAPY
     Dosage: 50 MG, 3X/DAY
     Route: 048
     Dates: start: 20080822, end: 20080825
  5. IVY EXTRACT [Concomitant]
     Indication: PRODUCTIVE COUGH
  6. LENOGRASTIM [Concomitant]
     Indication: NEUTROPHIL COUNT DECREASED
     Dosage: 100 UG, 1X/DAY
     Route: 058
     Dates: start: 20080822, end: 20080829
  7. VANCOMYCIN [Concomitant]
     Indication: DEVICE RELATED INFECTION
     Dosage: 1 G, 2X/DAY
     Route: 042
     Dates: start: 20080815, end: 20080909
  8. URSODEOXYCHOLIC ACID [Concomitant]
     Indication: BLOOD BILIRUBIN INCREASED
     Dosage: 200 MG, 3X/DAY
     Route: 048
     Dates: start: 20080728, end: 20080831
  9. SODIUM BICARBONATE [Concomitant]
     Dosage: 40 ML, 1X/DAY
     Route: 042
     Dates: start: 20080720, end: 20080825
  10. LEVOCLOPERASTINE FENDIZOATE [Concomitant]
     Indication: COUGH
     Dosage: 8 ML, 3X/DAY
     Route: 048
     Dates: start: 20080820, end: 20080906
  11. PHYTONADIONE [Concomitant]
     Indication: HYPOPROTHROMBINAEMIA
     Dosage: 10 MG, 1X/DAY
     Route: 042
     Dates: start: 20080720, end: 20080823
  12. CHLORPHENIRAMINE MALEATE [Concomitant]
     Indication: DRUG ERUPTION
     Dosage: 4 MG, 2X/DAY OR 3X/DAY
     Route: 042
     Dates: start: 20080822, end: 20080909
  13. LORAZEPAM [Concomitant]
     Indication: VOMITING
     Dosage: 4 MG, 1X/DAY
     Route: 042
     Dates: start: 20080814, end: 20080828
  14. COMBIFLEX [Concomitant]
     Indication: HYPOPHAGIA
     Dosage: 1000 ML, 1X/DAY
     Route: 042
     Dates: start: 20080804, end: 20080909
  15. ALBUMIN HUMAN [Concomitant]
     Indication: BLOOD ALBUMIN DECREASED
     Dosage: 100 ML, 1X/DAY
     Route: 042
     Dates: start: 20080822, end: 20080822
  16. DURAGESIC-100 [Concomitant]
     Indication: CANCER PAIN
     Dosage: 12 UG/HR, 1X/3 DAYS
     Route: 062
     Dates: start: 20080720, end: 20080907
  17. LANSOPRAZOL [Concomitant]
     Indication: ANTACID THERAPY
     Dosage: 30 MG, 1X/DAY
     Route: 048
     Dates: start: 20080811, end: 20080825
  18. GRANISETRON [Concomitant]
     Indication: VOMITING
     Dosage: 3 ML, 1X/DAY
     Route: 042
     Dates: start: 20080817, end: 20080905
  19. HYDROCORTISONE [Concomitant]
     Indication: SEPTIC SHOCK
     Dosage: 50 MG, 1X/DAY
     Route: 042
     Dates: start: 20080721, end: 20080909
  20. ORNITHINE ASPARTATE [Concomitant]
     Indication: PROPHYLAXIS
     Dosage: 500 MG, 2X/DAY
     Route: 042
     Dates: start: 20080729, end: 20080909
  21. BIPHENYL DIMETHYL DICARBOXYLATE [Concomitant]
     Indication: PROPHYLAXIS
     Dosage: 50 MG, 3X/DAY
     Route: 048
     Dates: start: 20080730, end: 20080831
  22. SCOPOLAMINE [Concomitant]
     Indication: NAUSEA
     Dosage: 1.5 MG, 1X/DAY
     Route: 062
     Dates: start: 20080724, end: 20080906
  23. SCOPOLAMINE [Concomitant]
     Indication: VOMITING
  24. CEFEPIME [Concomitant]
     Indication: DEVICE RELATED INFECTION
     Dosage: 2 G, 3X/DAY
     Route: 042
     Dates: start: 20080820, end: 20080825
  25. PANTOPRAZOLE [Concomitant]
     Indication: GASTROINTESTINAL DISORDER
     Dosage: 40 MG, 1X/DAY
     Route: 042
     Dates: start: 20080801, end: 20080909

REACTIONS (4)
  - ACUTE MYELOID LEUKAEMIA [None]
  - FEBRILE NEUTROPENIA [None]
  - HEPATOTOXICITY [None]
  - RENAL FAILURE ACUTE [None]
